FAERS Safety Report 22117202 (Version 2)
Quarter: 2023Q1

REPORT INFORMATION
  Report Type: Report from Study
  Country: TW (occurrence: TW)
  Receive Date: 20230320
  Receipt Date: 20230329
  Transmission Date: 20230418
  Serious: Yes (Death, Hospitalization, Other)
  Sender: FDA-Public Use
  Company Number: TW-GILEAD-2023-0619852

PATIENT
  Age: 78 Year
  Sex: Female
  Weight: 56 kg

DRUGS (6)
  1. SOFOSBUVIR\VELPATASVIR [Suspect]
     Active Substance: SOFOSBUVIR\VELPATASVIR
     Indication: Hepatitis C
     Dosage: 1 DOSAGE FORM, QD
     Route: 048
     Dates: start: 20190611, end: 20190902
  2. FOLIC ACID [Concomitant]
     Active Substance: FOLIC ACID
     Indication: Vitamin supplementation
     Dosage: UNK
     Dates: end: 20200802
  3. B. C. COMPLEX [Concomitant]
     Indication: Vitamin supplementation
     Dosage: UNK
     Dates: end: 20200802
  4. DIPYRIDAMOLE [Concomitant]
     Active Substance: DIPYRIDAMOLE
     Indication: Promotion of peripheral circulation
     Dosage: UNK
     Dates: end: 20200802
  5. MONOPRIL [Concomitant]
     Active Substance: FOSINOPRIL SODIUM
     Indication: Cardiac disorder
     Dosage: UNK
     Dates: end: 20200802
  6. ADALAT [Concomitant]
     Active Substance: NIFEDIPINE
     Indication: Cardiac disorder
     Dosage: UNK
     Dates: end: 20200802

REACTIONS (1)
  - Acute myocardial infarction [Fatal]

NARRATIVE: CASE EVENT DATE: 20200714
